FAERS Safety Report 4332707-9 (Version None)
Quarter: 2004Q1

REPORT INFORMATION
  Report Type: 
  Country: None (occurrence: None)
  Receive Date: 20040330
  Receipt Date: 20040317
  Transmission Date: 20041129
  Serious: Yes (Disabling)
  Sender: FDA-Public Use
  Company Number: 2003SE04704

PATIENT
  Age: 45 Year
  Sex: Female

DRUGS (1)
  1. NOLVADEX [Suspect]
     Indication: BREAST CANCER
     Dosage: 20 MG DAILY PO
     Route: 048
     Dates: start: 20001101

REACTIONS (5)
  - FATIGUE [None]
  - FEELING COLD [None]
  - HYPOTHYROIDISM [None]
  - MYALGIA [None]
  - WEIGHT INCREASED [None]
